FAERS Safety Report 17545624 (Version 1)
Quarter: 2020Q1

REPORT INFORMATION
  Report Type: Spontaneous
  Country: US (occurrence: US)
  Receive Date: 20200315
  Receipt Date: 20200315
  Transmission Date: 20200409
  Serious: No
  Sender: FDA-Public Use
  Company Number: None

PATIENT
  Age: 12 Year
  Sex: Male
  Weight: 44.55 kg

DRUGS (7)
  1. HYDROXYZIN [Concomitant]
  2. ZYRTEC [Concomitant]
     Active Substance: CETIRIZINE HYDROCHLORIDE
  3. VITAMIN D [Concomitant]
     Active Substance: VITAMIN D NOS
  4. MELATONIN [Concomitant]
     Active Substance: MELATONIN
  5. ADDERALL QUICK RELEASE [Concomitant]
  6. MULTIVITAMINS [Concomitant]
     Active Substance: VITAMINS
  7. LATUDA [Suspect]
     Active Substance: LURASIDONE HYDROCHLORIDE
     Indication: DEPRESSION
     Dosage: ?          QUANTITY:1 TABLET(S);?
     Route: 048

REACTIONS (12)
  - Palpitations [None]
  - Pain [None]
  - Insomnia [None]
  - Thinking abnormal [None]
  - Sensory disturbance [None]
  - Akathisia [None]
  - Restlessness [None]
  - Abdominal pain upper [None]
  - Myalgia [None]
  - Fatigue [None]
  - Musculoskeletal stiffness [None]
  - Tardive dyskinesia [None]

NARRATIVE: CASE EVENT DATE: 20190312
